FAERS Safety Report 14342738 (Version 1)
Quarter: 2018Q1

REPORT INFORMATION
  Report Type: Other
  Country: GB (occurrence: GB)
  Receive Date: 20180102
  Receipt Date: 20180102
  Transmission Date: 20180509
  Serious: Yes (Death, Hospitalization)
  Sender: FDA-Public Use
  Company Number: GB-CELLTRION INC.-2017GB012427

PATIENT

DRUGS (15)
  1. AZATHIOPRINE. [Concomitant]
     Active Substance: AZATHIOPRINE
  2. INFLIXIMAB (UNKNOWN) [Suspect]
     Active Substance: INFLIXIMAB
     Dosage: 450 MG, EVERY 8 WEEKS
     Route: 065
     Dates: start: 20170515, end: 20170515
  3. DIAZEPAM. [Concomitant]
     Active Substance: DIAZEPAM
  4. FOLIC ACID. [Concomitant]
     Active Substance: FOLIC ACID
  5. TOLTERODINE [Concomitant]
     Active Substance: TOLTERODINE
  6. LATANOPROST. [Concomitant]
     Active Substance: LATANOPROST
  7. OMEPRAZOLE. [Concomitant]
     Active Substance: OMEPRAZOLE
  8. INFLIXIMAB (UNKNOWN) [Suspect]
     Active Substance: INFLIXIMAB
     Indication: ANKYLOSING SPONDYLITIS
     Dosage: 450 MG, EVERY 8 WEEKS
     Route: 065
     Dates: start: 20151109, end: 20151109
  9. DIHYDROCODEINE [Concomitant]
     Active Substance: DIHYDROCODEINE
  10. TAMSULOSIN [Concomitant]
     Active Substance: TAMSULOSIN
  11. AMITRIPTYLINE [Concomitant]
     Active Substance: AMITRIPTYLINE
  12. AMLODIPINE [Concomitant]
     Active Substance: AMLODIPINE BESYLATE
  13. COCODAMOL [Concomitant]
     Active Substance: ACETAMINOPHEN\CODEINE PHOSPHATE
  14. FERROUS FUMARATE [Concomitant]
     Active Substance: FERROUS FUMARATE
  15. INDOMETHACIN                       /00003801/ [Concomitant]
     Active Substance: INDOMETHACIN

REACTIONS (3)
  - Depressed level of consciousness [Fatal]
  - Cellulitis [Fatal]
  - Pneumonia [Fatal]

NARRATIVE: CASE EVENT DATE: 201707
